FAERS Safety Report 7729333-8 (Version None)
Quarter: 2011Q3

REPORT INFORMATION
  Report Type: 
  Country: None (occurrence: None)
  Receive Date: 20110906
  Receipt Date: 20110829
  Transmission Date: 20111222
  Serious: Yes (Death)
  Sender: FDA-Public Use
  Company Number: JP-ASTELLAS-2011JP006026

PATIENT
  Age: 63 Year
  Sex: Female

DRUGS (23)
  1. BIAPENEM [Concomitant]
     Route: 065
  2. VANCOMYCIN [Concomitant]
     Route: 065
  3. IFOSFAMIDE [Concomitant]
     Route: 065
  4. DOXORUBICIN HCL [Concomitant]
     Route: 065
  5. FUNGUARD [Suspect]
     Dosage: 100 MG, UNKNOWN/D
     Route: 065
  6. CEFOZOPRAN [Concomitant]
     Route: 065
  7. ETOPOSIDE [Concomitant]
     Route: 065
  8. VINDESINE [Concomitant]
     Route: 065
  9. IRINOTECAN HYDROCHLORIDE [Concomitant]
     Route: 065
  10. FUNGUARD [Suspect]
     Dosage: 150 MG, UNKNOWN/D
     Route: 065
     Dates: end: 20060718
  11. DEXAMETHASONE [Concomitant]
     Route: 065
  12. CARBOPLATIN [Concomitant]
     Route: 065
  13. SULFAMETHOXAZOLE AND TRIMETHOPRIM [Concomitant]
     Route: 065
  14. FUNGUARD [Suspect]
     Dosage: 100 MG, UNKNOWN/D
     Route: 065
  15. ITRACONAZOLE [Concomitant]
     Dosage: 200 MG, UNKNOWN/D
     Route: 065
  16. CEFPIROME [Concomitant]
     Route: 065
  17. CYCLOPHOSPHAMIDE [Concomitant]
     Route: 065
  18. FUNGUARD [Suspect]
     Dosage: 150 MG, UNKNOWN/D
     Route: 065
  19. NEUPOGEN [Concomitant]
     Route: 065
  20. CIPROFLOXACIN [Concomitant]
     Route: 065
  21. MEROPENEM [Concomitant]
     Route: 065
  22. GANCICLOVIR [Concomitant]
     Route: 065
  23. PREDNISOLONE [Concomitant]
     Route: 065

REACTIONS (2)
  - DRUG INEFFECTIVE [None]
  - BRONCHOPULMONARY ASPERGILLOSIS [None]
